FAERS Safety Report 19272705 (Version 1)
Quarter: 2021Q2

REPORT INFORMATION
  Report Type: Report from Study
  Country: None (occurrence: DE)
  Receive Date: 20210519
  Receipt Date: 20210519
  Transmission Date: 20210717
  Serious: Yes (Hospitalization)
  Sender: FDA-Public Use
  Company Number: DE-ABBVIE-21K-062-3910201-00

PATIENT
  Age: 60 Year
  Sex: Female

DRUGS (2)
  1. HUMIRA [Suspect]
     Active Substance: ADALIMUMAB
     Indication: CROHN^S DISEASE
     Route: 058
     Dates: start: 201708, end: 201903
  2. AUBAGIO [Concomitant]
     Active Substance: TERIFLUNOMIDE
     Indication: MULTIPLE SCLEROSIS
     Route: 048

REACTIONS (6)
  - Depression [Recovered/Resolved]
  - Fall [Unknown]
  - Anxiety [Recovered/Resolved]
  - Ankle fracture [Recovered/Resolved]
  - Ankle fracture [Recovered/Resolved]
  - Immobile [Unknown]

NARRATIVE: CASE EVENT DATE: 201803
